FAERS Safety Report 15950362 (Version 2)
Quarter: 2019Q1

REPORT INFORMATION
  Report Type: Spontaneous
  Country: US (occurrence: US)
  Receive Date: 20190212
  Receipt Date: 20190214
  Transmission Date: 20190417
  Serious: No
  Sender: FDA-Public Use
  Company Number: US-BAYER-2019-029998

PATIENT
  Age: 82 Year
  Sex: Female
  Weight: 53.97 kg

DRUGS (2)
  1. MIRALAX [Suspect]
     Active Substance: POLYETHYLENE GLYCOL 3350
     Indication: GASTROINTESTINAL DISORDER
     Dosage: UNK
     Route: 048
  2. MIRALAX [Suspect]
     Active Substance: POLYETHYLENE GLYCOL 3350
     Indication: GASTROINTESTINAL DISORDER
     Dosage: 8.5 G, QD
     Route: 048
     Dates: start: 20190210, end: 20190210

REACTIONS (5)
  - Product taste abnormal [Unknown]
  - Poor quality product administered [Unknown]
  - Product odour abnormal [Unknown]
  - Underdose [None]
  - Incorrect product administration duration [None]

NARRATIVE: CASE EVENT DATE: 20190210
